FAERS Safety Report 4507483-7 (Version None)
Quarter: 2004Q4

REPORT INFORMATION
  Report Type: 
  Country: None (occurrence: None)
  Receive Date: 20041118
  Receipt Date: 20041112
  Transmission Date: 20050328
  Serious: Yes (Hospitalization)
  Sender: FDA-Public Use
  Company Number: A044-002-005308

PATIENT
  Age: 80 Year
  Sex: Female

DRUGS (5)
  1. ARICEPT [Suspect]
     Indication: DEMENTIA ALZHEIMER'S TYPE
     Dosage: ORAL
     Route: 048
  2. ASPIRIN [Suspect]
     Dosage: ORAL
     Route: 048
     Dates: end: 20040914
  3. LASIX [Suspect]
     Indication: DRUG USE FOR UNKNOWN INDICATION
     Dosage: ORAL
     Route: 048
     Dates: end: 20040914
  4. OMEPRAZOLE [Suspect]
     Indication: OESOPHAGITIS
     Dosage: ORAL
     Route: 048
     Dates: end: 20040914
  5. METHOTREXATE [Suspect]
     Indication: RHEUMATOID ARTHRITIS
     Dosage: 7.5 MG, ORAL
     Route: 048
     Dates: end: 20040913

REACTIONS (3)
  - FEBRILE NEUTROPENIA [None]
  - RASH VESICULAR [None]
  - STOMATITIS HAEMORRHAGIC [None]
